FAERS Safety Report 8597871-4 (Version None)
Quarter: 2012Q3

REPORT INFORMATION
  Report Type: 
  Country: None (occurrence: None)
  Receive Date: 20120816
  Receipt Date: 20120815
  Transmission Date: 20120928
  Serious: Yes (Death, Other)
  Sender: FDA-Public Use
  Company Number: PHHY2012NL068877

PATIENT
  Sex: Male

DRUGS (2)
  1. ZOMETA [Suspect]
     Indication: PROSTATE CANCER METASTATIC
     Dosage: 4MG/100ML SOLUTION FOR IV INFUSION ONCE PER 28 DAYS
     Route: 042
     Dates: start: 20120523
  2. ZOMETA [Suspect]
     Dosage: 4MG/100ML SOLUTION FOR IV INFUSION ONCE PER 28 DAYS
     Route: 042
     Dates: start: 20120711

REACTIONS (4)
  - DEATH [None]
  - ABNORMAL FAECES [None]
  - GASTROINTESTINAL DISORDER [None]
  - FEELING ABNORMAL [None]
